FAERS Safety Report 14935936 (Version 1)
Quarter: 2018Q2

REPORT INFORMATION
  Report Type: Spontaneous
  Country: JP (occurrence: JP)
  Receive Date: 20180524
  Receipt Date: 20180524
  Transmission Date: 20180711
  Serious: Yes (Other)
  Sender: FDA-Public Use
  Company Number: JP-GLAXOSMITHKLINE-JP2018JPN088304

PATIENT
  Sex: Male

DRUGS (1)
  1. AVOLVE [Suspect]
     Active Substance: DUTASTERIDE
     Indication: BENIGN PROSTATIC HYPERPLASIA
     Dosage: UNK
     Route: 048
     Dates: start: 2012

REACTIONS (1)
  - Metastases to liver [Unknown]

NARRATIVE: CASE EVENT DATE: 201802
